FAERS Safety Report 15007466 (Version 2)
Quarter: 2018Q4

REPORT INFORMATION
  Report Type: Report from Study
  Country: CN (occurrence: CN)
  Receive Date: 20180613
  Receipt Date: 20181128
  Transmission Date: 20190204
  Serious: Yes (Hospitalization)
  Sender: FDA-Public Use
  Company Number: CN-ASTRAZENECA-2018SE74240

PATIENT
  Age: 18698 Day
  Sex: Male

DRUGS (19)
  1. MEDI4736 [Suspect]
     Active Substance: DURVALUMAB
     Indication: NON-SMALL CELL LUNG CANCER
     Route: 042
     Dates: start: 20180112, end: 20180112
  2. SILIBININ [Concomitant]
     Active Substance: SILIBININ
     Indication: LIVER DISORDER
     Route: 048
     Dates: start: 20180308
  3. GLYCYRRHIZIN [Concomitant]
     Active Substance: GLYCYRRHIZIN
     Indication: LIVER DISORDER
     Route: 048
     Dates: start: 20180102, end: 20180108
  4. EPHEDRA [Concomitant]
     Active Substance: EPHEDRA
     Indication: COUGH
     Route: 048
     Dates: start: 20171227, end: 20180102
  5. BIFENDATE [Concomitant]
     Active Substance: BIFENDATE
     Indication: ANTIVIRAL PROPHYLAXIS
     Dosage: 5 GRAINS, THREE TIMES A DAY
     Route: 048
     Dates: start: 20180308, end: 20180503
  6. MEDI4736 [Suspect]
     Active Substance: DURVALUMAB
     Indication: NON-SMALL CELL LUNG CANCER
     Route: 042
     Dates: start: 20180404, end: 20180404
  7. CODEINE PHOSPHATE AND IBUPROFEN [Concomitant]
     Indication: MALIGNANT ASCITES
     Route: 048
     Dates: start: 20171226, end: 20180110
  8. EPHEDRA [Concomitant]
     Active Substance: EPHEDRA
     Indication: COUGH
     Route: 048
     Dates: start: 20180110, end: 20180323
  9. ESTAZOLAM. [Concomitant]
     Active Substance: ESTAZOLAM
     Indication: POOR QUALITY SLEEP
     Route: 048
     Dates: start: 20180504
  10. MEDI4736 [Suspect]
     Active Substance: DURVALUMAB
     Indication: NON-SMALL CELL LUNG CANCER
     Route: 042
     Dates: start: 20180209, end: 20180209
  11. RIVAROXABAN [Concomitant]
     Active Substance: RIVAROXABAN
     Indication: ANTICOAGULANT THERAPY
     Route: 048
     Dates: start: 20180305
  12. SILIBININ [Concomitant]
     Active Substance: SILIBININ
     Indication: LIVER DISORDER
     Route: 048
     Dates: start: 20180308, end: 20180308
  13. GLYCYRRHIZIN [Concomitant]
     Active Substance: GLYCYRRHIZIN
     Indication: LIVER DISORDER
     Route: 048
     Dates: start: 20180108, end: 20180112
  14. BIFENDATE [Concomitant]
     Active Substance: BIFENDATE
     Indication: ANTIVIRAL PROPHYLAXIS
     Route: 048
     Dates: start: 20180504
  15. MEDI4736 [Suspect]
     Active Substance: DURVALUMAB
     Indication: NON-SMALL CELL LUNG CANCER
     Route: 042
     Dates: start: 20180308, end: 20180308
  16. CODEINE PHOSPHATE AND IBUPROFEN [Concomitant]
     Indication: MALIGNANT ASCITES
     Route: 048
     Dates: start: 20180110
  17. EPHEDRA [Concomitant]
     Active Substance: EPHEDRA
     Indication: COUGH
     Route: 048
     Dates: start: 20180424
  18. MEDI4736 [Suspect]
     Active Substance: DURVALUMAB
     Indication: NON-SMALL CELL LUNG CANCER
     Route: 042
     Dates: start: 20180504, end: 20180504
  19. GLYCYRRHIZIN [Concomitant]
     Active Substance: GLYCYRRHIZIN
     Indication: LIVER DISORDER
     Route: 048
     Dates: start: 20180402

REACTIONS (1)
  - Cerebral infarction [Unknown]

NARRATIVE: CASE EVENT DATE: 20180604
